FAERS Safety Report 4477409-3 (Version None)
Quarter: 2004Q4

REPORT INFORMATION
  Report Type: 
  Country: None (occurrence: None)
  Receive Date: 20041012
  Receipt Date: 20040927
  Transmission Date: 20050328
  Serious: Yes (Other)
  Sender: FDA-Public Use
  Company Number: 163-20785-0409449

PATIENT
  Age: 80 Year
  Sex: Male

DRUGS (1)
  1. THALOMID [Suspect]
     Indication: DRUG USE FOR UNKNOWN INDICATION
     Dosage: 200 MG, DAILY, ORAL
     Route: 048
     Dates: start: 20030807, end: 20040101

REACTIONS (1)
  - LEUKAEMIA [None]
